FAERS Safety Report 6659491-8 (Version None)
Quarter: 2010Q1

REPORT INFORMATION
  Report Type: 
  Country: None (occurrence: None)
  Receive Date: 20100330
  Receipt Date: 20091218
  Transmission Date: 20100710
  Serious: Yes (Other)
  Sender: FDA-Public Use
  Company Number: JP-JNJFOC-20090800462

PATIENT
  Sex: Female

DRUGS (9)
  1. CRAVIT [Suspect]
     Indication: BRONCHITIS
     Route: 048
  2. CRAVIT [Suspect]
     Indication: RESPIRATORY TRACT INFECTION
     Route: 048
  3. LOXONIN [Suspect]
     Indication: PYREXIA
     Dosage: AS NEEDED
     Route: 048
  4. CARVEDILOL [Concomitant]
     Indication: CARDIAC FAILURE
     Route: 048
  5. MAGMITT [Concomitant]
     Indication: CONSTIPATION
     Route: 048
  6. DIART [Concomitant]
     Indication: CARDIAC FAILURE
     Route: 048
  7. ALDACTONE [Concomitant]
     Indication: CARDIAC FAILURE
     Route: 048
  8. LANIRAPID [Concomitant]
     Indication: ATRIAL FIBRILLATION
     Route: 048
  9. LANIRAPID [Concomitant]
     Indication: CARDIAC FAILURE
     Route: 048

REACTIONS (2)
  - CLONIC CONVULSION [None]
  - DEHYDRATION [None]
